FAERS Safety Report 4286328-7 (Version None)
Quarter: 2004Q1

REPORT INFORMATION
  Report Type: 
  Country: None (occurrence: None)
  Receive Date: 20040116
  Receipt Date: 20031008
  Transmission Date: 20041129
  Serious: Yes (Other)
  Sender: FDA-Public Use
  Company Number: 349025

PATIENT
  Age: 73 Year
  Sex: Male

DRUGS (3)
  1. VERSED [Suspect]
     Indication: SEDATION
     Dosage: INTRAMUSCULAR
     Route: 030
     Dates: start: 20031015, end: 20031015
  2. MORPHINE [Concomitant]
  3. ROMAZICON [Concomitant]

REACTIONS (8)
  - ABNORMAL SLEEP-RELATED EVENT [None]
  - BODY TEMPERATURE INCREASED [None]
  - HICCUPS [None]
  - HYPOTENSION [None]
  - LOSS OF CONSCIOUSNESS [None]
  - OXYGEN SATURATION DECREASED [None]
  - SLEEP APNOEA SYNDROME [None]
  - SOMNOLENCE [None]
